FAERS Safety Report 7636636-4 (Version None)
Quarter: 2011Q3

REPORT INFORMATION
  Report Type: 
  Country: None (occurrence: None)
  Receive Date: 20110719
  Receipt Date: 20110707
  Transmission Date: 20111222
  Serious: Yes (Other)
  Sender: FDA-Public Use
  Company Number: 1000021676

PATIENT
  Age: 79 Year
  Sex: Female

DRUGS (8)
  1. PROPAFENONE (PROPFENONE) (PROPFENONE) [Concomitant]
  2. HYDROCHLOROTHIAZIDE [Concomitant]
  3. ATORVASTATIN (ATORVASTATIN) (ATORVASTATIN) [Concomitant]
  4. WARFARIN SODIUM [Concomitant]
  5. DONEPEZIL HCL [Suspect]
     Indication: DEMENTIA ALZHEIMER'S TYPE
     Dosage: 5 MG (5 MG,1 IN 1 D)
  6. LEVOTHYROXINE (LEVOTHYROXINE) (LEVOTHYROXINE) [Concomitant]
  7. CILAZAPRIL (CILAZAPRIL) (CILAZAPRIL) [Concomitant]
  8. MEMANTINE [Suspect]
     Indication: DEMENTIA ALZHEIMER'S TYPE
     Dosage: 5 MG (5 MG,1 IN 1 D)

REACTIONS (4)
  - ALANINE AMINOTRANSFERASE INCREASED [None]
  - ASPARTATE AMINOTRANSFERASE INCREASED [None]
  - ABASIA [None]
  - APHASIA [None]
